FAERS Safety Report 5339076-6 (Version None)
Quarter: 2007Q2

REPORT INFORMATION
  Report Type: 
  Country: None (occurrence: None)
  Receive Date: 20070330
  Receipt Date: 20060920
  Transmission Date: 20071010
  Serious: Yes (Life-Threatening, Other)
  Sender: FDA-Public Use
  Company Number: 2006EN000167

PATIENT
  Age: 3 Year
  Sex: Female
  Weight: 15.1 kg

DRUGS (4)
  1. ONCASPAR [Suspect]
     Indication: ACUTE LYMPHOCYTIC LEUKAEMIA
     Dosage: 1625 IU; IM
     Route: 030
     Dates: end: 20060601
  2. ONCASPAR [Suspect]
     Indication: ACUTE LYMPHOCYTIC LEUKAEMIA
     Dosage: 1625 IU; IM
     Route: 030
     Dates: start: 20060724, end: 20060724
  3. VINCRISTINE [Concomitant]
  4. METHOTREXATE [Concomitant]

REACTIONS (3)
  - ANAPHYLACTIC REACTION [None]
  - RASH GENERALISED [None]
  - URTICARIA [None]
